FAERS Safety Report 13462122 (Version 1)
Quarter: 2017Q2

REPORT INFORMATION
  Report Type: Spontaneous
  Country: US (occurrence: US)
  Receive Date: 20170420
  Receipt Date: 20170420
  Transmission Date: 20170830
  Serious: No
  Sender: FDA-Public Use
  Company Number: None

PATIENT
  Age: 67 Year
  Sex: Male
  Weight: 81 kg

DRUGS (3)
  1. BACTRIM GENERIC 800/160 AMNEAL [Suspect]
     Active Substance: SULFAMETHOXAZOLE\TRIMETHOPRIM
     Indication: POSTOPERATIVE CARE
     Dosage: ?          QUANTITY:1 TABLET;?
     Route: 048
     Dates: start: 20170418, end: 20170419
  2. FINISTERIDE 1 OR 5MG MERCK [Concomitant]
     Active Substance: FINASTERIDE
  3. MULTI V [Concomitant]

REACTIONS (2)
  - Penile swelling [None]
  - Penile erythema [None]

NARRATIVE: CASE EVENT DATE: 20170419
